FAERS Safety Report 14386801 (Version 2)
Quarter: 2019Q4

REPORT INFORMATION
  Report Type: Spontaneous
  Country: US (occurrence: US)
  Receive Date: 20180115
  Receipt Date: 20191114
  Transmission Date: 20200122
  Serious: Yes (Other)
  Sender: FDA-Public Use
  Company Number: US-SA-2017SA119935

PATIENT
  Age: 64 Year
  Sex: Female
  Weight: 90 kg

DRUGS (10)
  1. PERJETA [Concomitant]
     Active Substance: PERTUZUMAB
     Dosage: UNK UNK, Q3W
     Dates: start: 20130719, end: 20130719
  2. HERCEPTIN [Concomitant]
     Active Substance: TRASTUZUMAB
     Dosage: UNK UNK, Q3W
     Dates: start: 20130719, end: 20130719
  3. PERJETA [Concomitant]
     Active Substance: PERTUZUMAB
     Indication: BREAST CANCER FEMALE
     Dosage: UNK UNK, Q3W
     Dates: start: 20130307, end: 20130307
  4. TAXOTERE [Suspect]
     Active Substance: DOCETAXEL
     Dosage: 148 MG,Q3W
     Route: 042
     Dates: start: 20130719, end: 20130719
  5. TAXOTERE [Suspect]
     Active Substance: DOCETAXEL
     Dosage: 148 MG,Q3W
     Route: 042
     Dates: start: 20130327, end: 20130327
  6. TAXOTERE [Suspect]
     Active Substance: DOCETAXEL
     Dosage: 148 MG,Q3W
     Route: 042
     Dates: start: 20130417, end: 20130417
  7. TAXOTERE [Suspect]
     Active Substance: DOCETAXEL
     Dosage: 148 MG,Q3W
     Route: 042
     Dates: start: 20130529, end: 20130529
  8. TAXOTERE [Suspect]
     Active Substance: DOCETAXEL
     Indication: BREAST CANCER FEMALE
     Dosage: 148 MG,Q3W
     Route: 042
     Dates: start: 20130307, end: 20130307
  9. TAXOTERE [Suspect]
     Active Substance: DOCETAXEL
     Dosage: 148 MG,Q3W
     Route: 042
     Dates: start: 20130508, end: 20130508
  10. HERCEPTIN [Concomitant]
     Active Substance: TRASTUZUMAB
     Indication: BREAST CANCER FEMALE
     Dosage: UNK UNK, Q3W
     Dates: start: 20130307, end: 20130307

REACTIONS (1)
  - Alopecia [Recovering/Resolving]

NARRATIVE: CASE EVENT DATE: 20140101
